FAERS Safety Report 9543243 (Version 1)
Quarter: 2013Q3

REPORT INFORMATION
  Report Type: Other
  Country: US (occurrence: US)
  Receive Date: 20130923
  Receipt Date: 20130923
  Transmission Date: 20140515
  Serious: Yes (Hospitalization)
  Sender: FDA-Public Use
  Company Number: US-US-EMD SERONO, INC.-7236987

PATIENT
  Age: 14 Year
  Sex: Female

DRUGS (3)
  1. SOMATROPIN [Suspect]
     Indication: FAILURE TO THRIVE
  2. ESTROGENS [Suspect]
     Indication: PUBERTY
  3. DESMOPRESSIN [Concomitant]
     Indication: ELECTROLYTE IMBALANCE

REACTIONS (3)
  - Pickwickian syndrome [Recovering/Resolving]
  - Anxiety [Recovering/Resolving]
  - Hallucination, auditory [Recovered/Resolved]
